FAERS Safety Report 8021195-7 (Version None)
Quarter: 2011Q4

REPORT INFORMATION
  Report Type: 
  Country: None (occurrence: None)
  Receive Date: 20111230
  Receipt Date: 20111230
  Transmission Date: 20120403
  Serious: Yes (Hospitalization)
  Sender: FDA-Public Use
  Company Number: None

PATIENT
  Sex: Female
  Weight: 58.1 kg

DRUGS (4)
  1. CYCLOPHOSPHAMIDE [Suspect]
     Dosage: 1600 MG
     Dates: end: 20111122
  2. METHOTREXATE [Suspect]
     Dosage: 15 MG
     Dates: end: 20111122
  3. CYTARABINE [Suspect]
     Dosage: 480 MG
     Dates: end: 20111125
  4. MERCAPTOPURINE [Suspect]
     Dosage: 575 MG
     Dates: end: 20111127

REACTIONS (4)
  - ASTHENIA [None]
  - HYPOAESTHESIA [None]
  - TOXICITY TO VARIOUS AGENTS [None]
  - APRAXIA [None]
